FAERS Safety Report 5265921-9 (Version None)
Quarter: 2007Q1

REPORT INFORMATION
  Report Type: 
  Country: None (occurrence: None)
  Receive Date: 20070315
  Receipt Date: 20070307
  Transmission Date: 20070707
  Serious: Yes (Other)
  Sender: FDA-Public Use
  Company Number: US-JNJFOC-20070301703

PATIENT
  Age: 16 Year
  Sex: Female
  Weight: 59.3 kg

DRUGS (7)
  1. REMICADE [Suspect]
     Indication: CROHN'S DISEASE
     Dosage: 300 MG; TREATMENT DURATION APPROXIMATELY 4 YEARS
     Route: 042
  2. IMURAN [Concomitant]
  3. PREVACID [Concomitant]
  4. MULTI-VITAMINS [Concomitant]
  5. FISH OIL [Concomitant]
  6. VITAMIN E [Concomitant]
  7. MTX [Concomitant]

REACTIONS (2)
  - PSORIASIS [None]
  - PSORIATIC ARTHROPATHY [None]
